FAERS Safety Report 7179433-9 (Version None)
Quarter: 2010Q4

REPORT INFORMATION
  Report Type: 
  Country: None (occurrence: None)
  Receive Date: 20101221
  Receipt Date: 20101210
  Transmission Date: 20110411
  Serious: Yes (Death, Other)
  Sender: FDA-Public Use
  Company Number: US-GENZYME-THYM-1002173

PATIENT
  Age: 48 Year
  Sex: Female

DRUGS (1)
  1. THYMOGLOBULIN [Suspect]
     Indication: LUNG TRANSPLANT REJECTION
     Route: 042

REACTIONS (2)
  - HAEMANGIOMA [None]
  - SYSTEMIC INFLAMMATORY RESPONSE SYNDROME [None]
